FAERS Safety Report 6794964-9 (Version None)
Quarter: 2010Q2

REPORT INFORMATION
  Report Type: 
  Country: None (occurrence: None)
  Receive Date: 20100624
  Receipt Date: 20100624
  Transmission Date: 20101027
  Serious: Yes (Life-Threatening, Other)
  Sender: FDA-Public Use
  Company Number: None

PATIENT
  Age: 57 Year
  Sex: Female
  Weight: 61.6892 kg

DRUGS (7)
  1. HYDROCHLOROTHIAZIDE [Suspect]
     Indication: HYPERTENSION
     Dosage: 1 CAP QDAY PO
     Route: 048
     Dates: start: 20100111, end: 20100516
  2. GEMFIBROZIL [Concomitant]
  3. OMEPRAZOLE [Concomitant]
  4. SUMATRIPTAN SUCCINATE (IMITREX) [Concomitant]
  5. CENTRUM [Concomitant]
  6. GLUCOSAMINE [Concomitant]
  7. CALCIUM CARBONATE [Concomitant]

REACTIONS (7)
  - ASTHENIA [None]
  - BLOOD PRESSURE DECREASED [None]
  - DIZZINESS [None]
  - GAIT DISTURBANCE [None]
  - HYPONATRAEMIA [None]
  - PRODUCT FORMULATION ISSUE [None]
  - VOMITING [None]
